FAERS Safety Report 8579781-1 (Version None)
Quarter: 2012Q3

REPORT INFORMATION
  Report Type: 
  Country: None (occurrence: None)
  Receive Date: 20120808
  Receipt Date: 20120727
  Transmission Date: 20120928
  Serious: No
  Sender: FDA-Public Use
  Company Number: US-ASTRAZENECA-2012SE53497

PATIENT
  Sex: Female

DRUGS (2)
  1. PRILOSEC [Suspect]
     Indication: ABDOMINAL PAIN UPPER
     Route: 048
  2. PRILOSEC [Suspect]
     Indication: DYSPEPSIA
     Route: 048

REACTIONS (4)
  - DYSPEPSIA [None]
  - DRUG INEFFECTIVE [None]
  - OFF LABEL USE [None]
  - ABDOMINAL PAIN UPPER [None]
